FAERS Safety Report 7532384-X (Version None)
Quarter: 2011Q2

REPORT INFORMATION
  Report Type: 
  Country: None (occurrence: None)
  Receive Date: 20110608
  Receipt Date: 20110603
  Transmission Date: 20111010
  Serious: Yes (Life-Threatening, Hospitalization, Other)
  Sender: FDA-Public Use
  Company Number: US-PFIZER INC-2008035629

PATIENT
  Sex: Female
  Weight: 59 kg

DRUGS (4)
  1. CHANTIX [Suspect]
     Indication: SMOKING CESSATION THERAPY
     Dosage: 1 MG PER TABLET
     Dates: start: 20070101
  2. LORTAB [Concomitant]
     Dosage: UNK
  3. XANAX [Concomitant]
     Indication: PANIC REACTION
  4. XANAX [Concomitant]
     Indication: ANXIETY
     Dosage: UNK
     Dates: start: 19950101, end: 20110330

REACTIONS (17)
  - LOSS OF CONSCIOUSNESS [None]
  - HALLUCINATION [None]
  - SUICIDE ATTEMPT [None]
  - ANXIETY [None]
  - JOINT INJURY [None]
  - DEPRESSION [None]
  - ANGER [None]
  - NAUSEA [None]
  - INTENTIONAL SELF-INJURY [None]
  - PERSONALITY CHANGE [None]
  - DISTURBANCE IN ATTENTION [None]
  - TENOSYNOVITIS [None]
  - HYPOKINESIA [None]
  - PAIN [None]
  - ABNORMAL BEHAVIOUR [None]
  - INSOMNIA [None]
  - BLOOD ETHANOL INCREASED [None]
